FAERS Safety Report 6360310-8 (Version None)
Quarter: 2009Q3

REPORT INFORMATION
  Report Type: 
  Country: None (occurrence: None)
  Receive Date: 20090917
  Receipt Date: 20090911
  Transmission Date: 20100115
  Serious: Yes (Hospitalization)
  Sender: FDA-Public Use
  Company Number: NL-TEVA-209154ISR

PATIENT
  Age: 63 Year
  Sex: Female

DRUGS (8)
  1. CIPROFLAXACIN [Suspect]
     Indication: INFECTION
  2. TRAMADOL HCL [Suspect]
     Indication: PAIN
  3. PARACETAMOL [Suspect]
  4. BUFLOMEDIL [Suspect]
  5. NADROPARIN [Suspect]
     Dosage: 2850 E
  6. PREGABALIN [Suspect]
  7. PIRITRAMIDE [Suspect]
  8. AMITRIPTYLINE [Suspect]

REACTIONS (6)
  - BLOOD PRESSURE SYSTOLIC INCREASED [None]
  - INTERNATIONAL NORMALISED RATIO INCREASED [None]
  - MICROCYTIC ANAEMIA [None]
  - NECROSIS [None]
  - SKIN DISCOLOURATION [None]
  - ULCER [None]
